FAERS Safety Report 6842521-8 (Version None)
Quarter: 2010Q3

REPORT INFORMATION
  Report Type: 
  Country: None (occurrence: None)
  Receive Date: 20100714
  Receipt Date: 20070730
  Transmission Date: 20110219
  Serious: No
  Sender: FDA-Public Use
  Company Number: US-PFIZER INC-2007065295

PATIENT
  Sex: Male
  Weight: 110 kg

DRUGS (9)
  1. CHANTIX [Suspect]
     Indication: SMOKING CESSATION THERAPY
     Dates: start: 20070729
  2. TRIAMTERENE AND HYDROCHLOROTHIAZIDE [Concomitant]
  3. COLCHICINE [Concomitant]
     Indication: GOUT
  4. TAMSULOSIN HCL [Concomitant]
     Indication: PROSTATOMEGALY
  5. ALLOPURINOL [Concomitant]
     Indication: HYPERTENSION
  6. FUROSEMIDE [Concomitant]
  7. CELEBREX [Concomitant]
     Indication: ARTHRITIS
  8. KLOR-CON [Concomitant]
  9. ACETYLSALICYLIC ACID [Concomitant]

REACTIONS (2)
  - FEELING ABNORMAL [None]
  - HYPERTENSION [None]
